APPROVED DRUG PRODUCT: RENACIDIN
Active Ingredient: CITRIC ACID; GLUCONOLACTONE; MAGNESIUM CARBONATE
Strength: 6.602GM/100ML;198MG/100ML;3.177GM/100ML
Dosage Form/Route: SOLUTION;IRRIGATION
Application: N019481 | Product #001
Applicant: UNITED GUARDIAN INC
Approved: Oct 2, 1990 | RLD: Yes | RS: Yes | Type: RX